FAERS Safety Report 9924111 (Version 1)
Quarter: 2014Q1

REPORT INFORMATION
  Report Type: Report from Study
  Country: JP (occurrence: JP)
  Receive Date: 20140226
  Receipt Date: 20140226
  Transmission Date: 20141002
  Serious: Yes (Death, Life-Threatening)
  Sender: FDA-Public Use
  Company Number: JP-009507513-1402JPN010870

PATIENT
  Age: 82 Year
  Sex: Male
  Weight: 52 kg

DRUGS (7)
  1. CANCIDAS FOR INTRAVENOUS DRIP INFUSION 50MG [Suspect]
     Indication: INTERSTITIAL LUNG DISEASE
     Dosage: 50 MG, QD
     Route: 041
     Dates: start: 20131016, end: 20131021
  2. CANCIDAS FOR INTRAVENOUS DRIP INFUSION 70MG [Suspect]
     Indication: INTERSTITIAL LUNG DISEASE
     Dosage: 70 MG, QD
     Route: 041
     Dates: start: 20131015, end: 20131015
  3. MEROPEN [Concomitant]
     Indication: PNEUMONIA
     Dosage: 1 G, BID
     Route: 051
     Dates: start: 20131015, end: 20131021
  4. PREDNISOLONE [Concomitant]
     Indication: INTERSTITIAL LUNG DISEASE
     Dosage: 30 MG, BID
     Route: 051
     Dates: start: 20131016, end: 20131018
  5. SOL MELCORT [Concomitant]
     Indication: INTERSTITIAL LUNG DISEASE
     Dosage: 1 G, QD
     Route: 051
     Dates: start: 20131019, end: 20131021
  6. VANCOMYCIN [Concomitant]
     Indication: PNEUMONIA
     Dosage: 1 G, QD
     Route: 051
     Dates: start: 20131017, end: 20131021
  7. BAKTAR [Concomitant]
     Indication: PNEUMONIA
     Dosage: 3 DF, TID
     Route: 048
     Dates: start: 20131015, end: 20131021

REACTIONS (4)
  - Pneumonia [Fatal]
  - Renal disorder [Fatal]
  - Amylase increased [Recovering/Resolving]
  - Drug ineffective [Unknown]
